FAERS Safety Report 6213922-6 (Version None)
Quarter: 2009Q2

REPORT INFORMATION
  Report Type: 
  Country: None (occurrence: None)
  Receive Date: 20090601
  Receipt Date: 20090601
  Transmission Date: 20091009
  Serious: No
  Sender: FDA-Public Use
  Company Number: None

PATIENT
  Age: 46 Year
  Sex: Female
  Weight: 74.8435 kg

DRUGS (2)
  1. REPRONEX [Suspect]
     Indication: INFERTILITY
     Dosage: 6 VIALS-75IU- DAILY SQ
     Route: 058
     Dates: start: 20090408, end: 20090415
  2. REPRONEX [Suspect]
     Indication: INFERTILITY
     Dosage: 3 VIALS 75IU BID SQ 9 DAYS IN NOV 2008
     Route: 058
     Dates: start: 20080801

REACTIONS (1)
  - THROMBOPHLEBITIS [None]
